FAERS Safety Report 20096398 (Version 1)
Quarter: 2021Q4

REPORT INFORMATION
  Report Type: Spontaneous
  Country: US (occurrence: None)
  Receive Date: 20211119
  Receipt Date: 20211119
  Transmission Date: 20220304
  Serious: No
  Sender: FDA-Public Use
  Company Number: None

PATIENT
  Age: 11 Year
  Sex: Male
  Weight: 39.6 kg

DRUGS (4)
  1. ONCASPAR [Suspect]
     Active Substance: PEGASPARGASE
     Indication: Acute lymphocytic leukaemia
     Dosage: OTHER FREQUENCY : ONCE;?
     Route: 042
     Dates: start: 20210813, end: 20211006
  2. Famotidne [Concomitant]
  3. DIPHENHYDRAMINE [Concomitant]
     Active Substance: DIPHENHYDRAMINE
  4. MERCAPTOPURINE [Concomitant]
     Active Substance: MERCAPTOPURINE

REACTIONS (9)
  - Infusion related reaction [None]
  - Irritability [None]
  - Nausea [None]
  - Dizziness [None]
  - Hot flush [None]
  - Abdominal discomfort [None]
  - Pruritus [None]
  - Pruritus [None]
  - Respiratory rate decreased [None]

NARRATIVE: CASE EVENT DATE: 20211005
